FAERS Safety Report 10702534 (Version 1)
Quarter: 2015Q1

REPORT INFORMATION
  Report Type: Spontaneous
  Country: US (occurrence: US)
  Receive Date: 20150109
  Receipt Date: 20150109
  Transmission Date: 20150721
  Serious: No
  Sender: FDA-Public Use
  Company Number: US-PFIZER INC-2015008885

PATIENT
  Age: 77 Year
  Sex: Male
  Weight: 84 kg

DRUGS (4)
  1. VIAGRA [Suspect]
     Active Substance: SILDENAFIL CITRATE
     Dosage: 25 MG, X3 OVER 2 HOURS
     Route: 048
  2. VIAGRA [Suspect]
     Active Substance: SILDENAFIL CITRATE
     Dosage: 1/4 OF A 100 MG TABLET , AS NEEDED
  3. LIPITOR [Concomitant]
     Active Substance: ATORVASTATIN CALCIUM
     Indication: BLOOD CHOLESTEROL
     Dosage: 10 MG, DAILY
     Route: 048
  4. DIOVAN [Concomitant]
     Active Substance: VALSARTAN
     Indication: BLOOD PRESSURE
     Dosage: 160/80 MG, DAILY
     Route: 048

REACTIONS (2)
  - Product quality issue [Unknown]
  - Drug ineffective [Unknown]
